FAERS Safety Report 20442375 (Version 1)
Quarter: 2022Q1

REPORT INFORMATION
  Report Type: Spontaneous
  Country: BR (occurrence: BR)
  Receive Date: 20220208
  Receipt Date: 20220208
  Transmission Date: 20220423
  Serious: Yes (Other)
  Sender: FDA-Public Use
  Company Number: BR-NOVARTISPH-NVSC2022BR025631

PATIENT
  Sex: Female

DRUGS (2)
  1. ZOLPIDEM [Suspect]
     Active Substance: ZOLPIDEM TARTRATE
     Indication: Product used for unknown indication
     Dosage: UNK
     Route: 065
     Dates: start: 20220106
  2. DULOXETINE HYDROCHLORIDE [Suspect]
     Active Substance: DULOXETINE HYDROCHLORIDE
     Indication: Product used for unknown indication
     Dosage: UNK
     Route: 065
     Dates: start: 20220106

REACTIONS (15)
  - Schizophrenia [Unknown]
  - Poisoning [Unknown]
  - Paraesthesia [Unknown]
  - Sensory disturbance [Unknown]
  - Injection site pain [Unknown]
  - Erythema [Unknown]
  - Feeling abnormal [Unknown]
  - Anxiety [Unknown]
  - Lethargy [Unknown]
  - Burning sensation [Unknown]
  - Dysphagia [Unknown]
  - Panic attack [Unknown]
  - Vomiting [Unknown]
  - Headache [Unknown]
  - Nausea [Unknown]
